FAERS Safety Report 7681494-5 (Version None)
Quarter: 2011Q3

REPORT INFORMATION
  Report Type: 
  Country: None (occurrence: None)
  Receive Date: 20110812
  Receipt Date: 20110804
  Transmission Date: 20111222
  Serious: Yes (Other)
  Sender: FDA-Public Use
  Company Number: PHHY2011US71213

PATIENT
  Age: 65 Year
  Sex: Male

DRUGS (1)
  1. EVEROLIMUS [Suspect]
     Dosage: 10 MG, DAILY
     Route: 048
     Dates: start: 20100401

REACTIONS (6)
  - THYROXINE FREE ABNORMAL [None]
  - NODULE [None]
  - RASH [None]
  - HYPERLIPIDAEMIA [None]
  - BLOOD THYROID STIMULATING HORMONE ABNORMAL [None]
  - HYPOTHYROIDISM [None]
